FAERS Safety Report 22943673 (Version 2)
Quarter: 2023Q4

REPORT INFORMATION
  Report Type: Report from Study
  Country: US (occurrence: US)
  Receive Date: 20230914
  Receipt Date: 20231114
  Transmission Date: 20240110
  Serious: Yes (Other)
  Sender: FDA-Public Use
  Company Number: US-ABBVIE-5406176

PATIENT
  Sex: Female
  Weight: 75.75 kg

DRUGS (1)
  1. HUMIRA [Suspect]
     Active Substance: ADALIMUMAB
     Indication: Product used for unknown indication
     Dosage: 0.4/40MG
     Route: 058
     Dates: start: 202208

REACTIONS (5)
  - Sudden hearing loss [Unknown]
  - Deafness unilateral [Unknown]
  - Crohn^s disease [Unknown]
  - Adverse food reaction [Unknown]
  - Constipation [Unknown]

NARRATIVE: CASE EVENT DATE: 20230101
